FAERS Safety Report 12734423 (Version 3)
Quarter: 2016Q4

REPORT INFORMATION
  Report Type: Spontaneous
  Country: JP (occurrence: JP)
  Receive Date: 20160912
  Receipt Date: 20161114
  Transmission Date: 20170207
  Serious: Yes (Life-Threatening, Hospitalization, Other)
  Sender: FDA-Public Use
  Company Number: JP-ASTRAZENECA-2016SE96397

PATIENT
  Age: 3 Year
  Sex: Female
  Weight: 14 kg

DRUGS (16)
  1. CANCIDAS [Suspect]
     Active Substance: CASPOFUNGIN ACETATE
     Indication: PYREXIA
     Route: 041
     Dates: start: 20160607, end: 20160607
  2. BFLUID [Concomitant]
     Active Substance: AMINO ACIDS\DEXTROSE\ELECTROLYTES NOS\VITAMINS
     Dates: start: 20160604, end: 20160606
  3. FENTANYL. [Concomitant]
     Active Substance: FENTANYL
     Indication: PAIN
     Dates: start: 20160607, end: 20160613
  4. CUBICIN [Suspect]
     Active Substance: DAPTOMYCIN
     Indication: PYREXIA
     Route: 041
     Dates: start: 20160606, end: 20160608
  5. MEROPEN [Suspect]
     Active Substance: MEROPENEM
     Indication: DEVICE RELATED INFECTION
     Route: 041
     Dates: start: 20160604, end: 20160608
  6. CANCIDAS [Suspect]
     Active Substance: CASPOFUNGIN ACETATE
     Indication: FUNGAL INFECTION
     Route: 041
     Dates: start: 20160606, end: 20160606
  7. FLUCONAZOLE. [Concomitant]
     Active Substance: FLUCONAZOLE
     Dates: start: 20150909, end: 20160608
  8. ACELIO [Concomitant]
     Active Substance: ACETAMINOPHEN
     Dates: start: 20160605, end: 20160606
  9. HYDROCORTONE [Concomitant]
     Active Substance: HYDROCORTISONE
     Dates: end: 201606
  10. BAKTAR [Concomitant]
     Active Substance: SULFAMETHOXAZOLE\TRIMETHOPRIM
     Dates: start: 20150909, end: 20160608
  11. CANCIDAS [Suspect]
     Active Substance: CASPOFUNGIN ACETATE
     Indication: PYREXIA
     Route: 041
     Dates: start: 20160606, end: 20160606
  12. MEROPEN [Suspect]
     Active Substance: MEROPENEM
     Indication: PYREXIA
     Route: 041
     Dates: start: 20160604, end: 20160608
  13. METHOTREXATE. [Suspect]
     Active Substance: METHOTREXATE
     Indication: ACUTE LYMPHOCYTIC LEUKAEMIA
     Route: 041
     Dates: start: 20160601, end: 20160601
  14. METHOTREXATE. [Suspect]
     Active Substance: METHOTREXATE
     Indication: ACUTE LYMPHOCYTIC LEUKAEMIA
     Route: 028
     Dates: start: 20160601, end: 20160601
  15. CANCIDAS [Suspect]
     Active Substance: CASPOFUNGIN ACETATE
     Indication: FUNGAL INFECTION
     Route: 041
     Dates: start: 20160607, end: 20160607
  16. FULCALIQ [Concomitant]
     Active Substance: AMINO ACIDS\CARBOHYDRATES\ELECTROLYTES NOS\VITAMINS
     Dates: start: 20160606, end: 20160614

REACTIONS (5)
  - Thrombocytopenia [Recovered/Resolved]
  - Febrile neutropenia [Recovered/Resolved]
  - Hypogammaglobulinaemia [Recovered/Resolved]
  - Stevens-Johnson syndrome [Recovered/Resolved]
  - Anaemia [Unknown]

NARRATIVE: CASE EVENT DATE: 2016
